APPROVED DRUG PRODUCT: BUTALBITAL, ASPIRIN, CAFFEINE, AND CODEINE PHOSPHATE
Active Ingredient: ASPIRIN; BUTALBITAL; CAFFEINE; CODEINE PHOSPHATE
Strength: 325MG;50MG;40MG;30MG
Dosage Form/Route: CAPSULE;ORAL
Application: A203335 | Product #001
Applicant: DR REDDYS LABORATORIES SA
Approved: Oct 30, 2015 | RLD: No | RS: No | Type: DISCN